FAERS Safety Report 8246901-8 (Version None)
Quarter: 2012Q1

REPORT INFORMATION
  Report Type: 
  Country: None (occurrence: None)
  Receive Date: 20120330
  Receipt Date: 20120321
  Transmission Date: 20120608
  Serious: Yes (Hospitalization)
  Sender: FDA-Public Use
  Company Number: JP-SANOFI-AVENTIS-2012SA021830

PATIENT
  Age: 90 Year
  Sex: Male

DRUGS (4)
  1. LANSOPRAZOLE [Suspect]
     Route: 065
  2. WARFARIN SODIUM [Suspect]
     Route: 065
  3. ATORVASTATIN CALCIUM [Suspect]
     Route: 048
  4. PLAVIX [Suspect]
     Route: 065

REACTIONS (1)
  - JAUNDICE [None]
